FAERS Safety Report 6846085-4 (Version None)
Quarter: 2010Q3

REPORT INFORMATION
  Report Type: 
  Country: None (occurrence: None)
  Receive Date: 20100715
  Receipt Date: 20070918
  Transmission Date: 20110219
  Serious: Yes (Other)
  Sender: FDA-Public Use
  Company Number: US-PFIZER INC-2007073118

PATIENT
  Sex: Female
  Weight: 54 kg

DRUGS (9)
  1. CHANTIX [Suspect]
     Indication: SMOKING CESSATION THERAPY
     Dates: start: 20070723
  2. MILK OF MAGNESIA TAB [Suspect]
     Indication: CONSTIPATION
     Dates: start: 20070825
  3. PROMETRIUM [Concomitant]
  4. ESTRATEST [Concomitant]
  5. MULTI-VITAMINS [Concomitant]
  6. ACETYLSALICYLIC ACID [Concomitant]
  7. CYMBALTA [Concomitant]
  8. PROVIGIL [Concomitant]
     Indication: HYPERSOMNIA
  9. KLONOPIN [Concomitant]

REACTIONS (10)
  - ABNORMAL DREAMS [None]
  - CHEST PAIN [None]
  - CONSTIPATION [None]
  - FATIGUE [None]
  - FEELING ABNORMAL [None]
  - LOSS OF CONSCIOUSNESS [None]
  - MEMORY IMPAIRMENT [None]
  - NAUSEA [None]
  - ONYCHOCLASIS [None]
  - SLEEP DISORDER [None]
